FAERS Safety Report 20365259 (Version 1)
Quarter: 2022Q1

REPORT INFORMATION
  Report Type: Report from Study
  Country: US (occurrence: US)
  Receive Date: 20220122
  Receipt Date: 20220122
  Transmission Date: 20220423
  Serious: Yes (Other)
  Sender: FDA-Public Use
  Company Number: US-SA-SAC20210402001194

PATIENT

DRUGS (3)
  1. CEMIPLIMAB [Suspect]
     Active Substance: CEMIPLIMAB
     Indication: Product used for unknown indication
     Dosage: UNK UNK, QCY
     Dates: start: 20200228, end: 20200228
  2. CEMIPLIMAB [Suspect]
     Active Substance: CEMIPLIMAB
     Indication: Squamous cell carcinoma of skin
     Dosage: UNK
     Route: 042
  3. SYNTHROID [Concomitant]
     Active Substance: LEVOTHYROXINE SODIUM
     Indication: Product used for unknown indication
     Dosage: UNK
     Route: 065

REACTIONS (5)
  - Basal cell carcinoma [Unknown]
  - Cerebrovascular accident [Recovered/Resolved]
  - Disorganised speech [Recovered/Resolved]
  - Dry skin [Not Recovered/Not Resolved]
  - Thyroid hormones decreased [Recovered/Resolved]

NARRATIVE: CASE EVENT DATE: 20200612
